FAERS Safety Report 8793842 (Version 1)
Quarter: 2012Q4

REPORT INFORMATION
  Report Type: 
  Country: US (occurrence: US)
  Receive Date: 20120918
  Receipt Date: 20120918
  Transmission Date: 20130627
  Serious: Yes (Other)
  Sender: FDA-Public Use
  Company Number: US-BRISTOL-MYERS SQUIBB COMPANY-16970261

PATIENT
  Age: 54 Year
  Sex: Male

DRUGS (11)
  1. SUSTIVA [Suspect]
     Route: 048
  2. REYATAZ [Suspect]
     Route: 065
  3. ISENTRESS [Suspect]
     Dosage: Tab
     Route: 048
  4. BUPROPION HCL [Suspect]
     Route: 065
  5. LAMIVUDINE [Suspect]
     Route: 065
  6. CLONAZEPAM [Suspect]
     Route: 065
  7. ZOPICLONE [Suspect]
     Route: 065
  8. QUETIAPINE FUMARATE [Suspect]
     Route: 065
  9. SERTRALINE HCL [Suspect]
     Route: 065
  10. KALETRA [Interacting]
     Route: 065
  11. VALPROIC ACID [Interacting]
     Route: 065

REACTIONS (2)
  - Drug interaction [Unknown]
  - Depression [Unknown]
